FAERS Safety Report 7459491-4 (Version None)
Quarter: 2011Q2

REPORT INFORMATION
  Report Type: 
  Country: None (occurrence: None)
  Receive Date: 20110504
  Receipt Date: 20110504
  Transmission Date: 20111010
  Serious: Yes (Other)
  Sender: FDA-Public Use
  Company Number: None

PATIENT
  Age: 61 Year
  Sex: Female
  Weight: 84.8226 kg

DRUGS (1)
  1. CYMBALTA [Suspect]
     Indication: OSTEOARTHRITIS
     Dosage: 1 TABLET BEFORE BEDTIME PO  1 DOSE
     Route: 048
     Dates: start: 20100511, end: 20100512

REACTIONS (3)
  - LOSS OF CONSCIOUSNESS [None]
  - HEAD INJURY [None]
  - SOMNOLENCE [None]
